FAERS Safety Report 7244505-7 (Version None)
Quarter: 2011Q1

REPORT INFORMATION
  Report Type: 
  Country: None (occurrence: None)
  Receive Date: 20110125
  Receipt Date: 20110119
  Transmission Date: 20110831
  Serious: Yes (Other)
  Sender: FDA-Public Use
  Company Number: US-US-EMD SERONO, INC.-7037408

PATIENT
  Sex: Female

DRUGS (2)
  1. DEPRESSION MEDICATION [Concomitant]
     Indication: DEPRESSION
  2. REBIF [Suspect]
     Indication: PRODUCT USED FOR UNKNOWN INDICATION
     Route: 058
     Dates: start: 20100909, end: 20101001

REACTIONS (2)
  - SUICIDAL IDEATION [None]
  - DEPRESSION [None]
